FAERS Safety Report 15006511 (Version 1)
Quarter: 2018Q2

REPORT INFORMATION
  Report Type: Spontaneous
  Country: US (occurrence: US)
  Receive Date: 20180613
  Receipt Date: 20180613
  Transmission Date: 20180711
  Serious: No
  Sender: FDA-Public Use
  Company Number: US-US WORLDMEDS, LLC-USW201708-001133

PATIENT
  Age: 66 Year
  Sex: Male
  Weight: 86.18 kg

DRUGS (4)
  1. APOKYN [Suspect]
     Active Substance: APOMORPHINE HYDROCHLORIDE
     Dates: start: 20170707, end: 20170707
  2. SINEMET [Concomitant]
     Active Substance: CARBIDOPA\LEVODOPA
  3. LISINOPRIL. [Concomitant]
     Active Substance: LISINOPRIL
  4. ADALAT [Concomitant]
     Active Substance: NIFEDIPINE

REACTIONS (2)
  - Blood pressure decreased [Unknown]
  - Feeling abnormal [Unknown]
